FAERS Safety Report 13175863 (Version 3)
Quarter: 2017Q2

REPORT INFORMATION
  Report Type: Spontaneous
  Country: US (occurrence: US)
  Receive Date: 20170201
  Receipt Date: 20170424
  Transmission Date: 20170830
  Serious: Yes (Other)
  Sender: FDA-Public Use
  Company Number: US-BRISTOL-MYERS SQUIBB COMPANY-BMS-2017-006583

PATIENT
  Sex: Female
  Weight: 65.2 kg

DRUGS (5)
  1. YERVOY [Suspect]
     Active Substance: IPILIMUMAB
     Indication: PRODUCT USED FOR UNKNOWN INDICATION
     Dosage: UNK UNK, Q3WK
     Route: 042
     Dates: start: 20170131
  2. YERVOY [Suspect]
     Active Substance: IPILIMUMAB
     Indication: PRODUCT USED FOR UNKNOWN INDICATION
     Dosage: UNK UNK, Q3WK
     Route: 042
     Dates: start: 20170221
  3. OMEGA 3                            /01333901/ [Concomitant]
     Active Substance: FISH OIL\TOCOPHEROL
     Indication: PRODUCT USED FOR UNKNOWN INDICATION
     Route: 065
  4. MULTIVITAMIN                       /00097801/ [Concomitant]
     Active Substance: VITAMINS
     Indication: PRODUCT USED FOR UNKNOWN INDICATION
     Route: 065
  5. YERVOY [Suspect]
     Active Substance: IPILIMUMAB
     Indication: MALIGNANT MELANOMA
     Dosage: 652 MG, TOTAL
     Route: 065
     Dates: start: 20170110

REACTIONS (12)
  - Pruritus [Recovered/Resolved]
  - Weight decreased [Unknown]
  - Nausea [Unknown]
  - Toxicity to various agents [Unknown]
  - Headache [Unknown]
  - Decreased appetite [Unknown]
  - Overdose [Unknown]
  - Stomatitis [Unknown]
  - Fatigue [Unknown]
  - Malignant neoplasm progression [Unknown]
  - Feeling cold [Unknown]
  - Thyroid disorder [Unknown]
